FAERS Safety Report 8995456 (Version 1)
Quarter: 2013Q1

REPORT INFORMATION
  Report Type: Spontaneous
  Country: US (occurrence: US)
  Receive Date: 20130103
  Receipt Date: 20130103
  Transmission Date: 20140127
  Serious: No
  Sender: FDA-Public Use
  Company Number: US-ABBOTT-12P-163-0925070-00

PATIENT
  Sex: Female
  Weight: 99.88 kg

DRUGS (2)
  1. SYNTHROID [Suspect]
     Indication: HYPOTHYROIDISM
  2. METHADOSE [Concomitant]
     Indication: DRUG DEPENDENCE
     Dosage: BEING WEANED OFF

REACTIONS (1)
  - Alopecia [Unknown]
